APPROVED DRUG PRODUCT: BROVANA
Active Ingredient: ARFORMOTEROL TARTRATE
Strength: EQ 0.015MG BASE/2ML
Dosage Form/Route: SOLUTION;INHALATION
Application: N021912 | Product #001
Applicant: LUPIN INC
Approved: Oct 6, 2006 | RLD: Yes | RS: No | Type: DISCN